FAERS Safety Report 7867907-4 (Version None)
Quarter: 2011Q4

REPORT INFORMATION
  Report Type: 
  Country: None (occurrence: None)
  Receive Date: 20111028
  Receipt Date: 20111018
  Transmission Date: 20120403
  Serious: Yes (Disabling, Other)
  Sender: FDA-Public Use
  Company Number: PHHY2011IT64177

PATIENT
  Sex: Female

DRUGS (11)
  1. PILOCARPINE [Concomitant]
     Dates: start: 20110805
  2. BRIMONIDINE TARTRATE [Concomitant]
     Dates: start: 20100804
  3. COMBIGAN [Concomitant]
     Dates: start: 20110805
  4. COSOPT [Concomitant]
     Dates: start: 20110805
  5. AZOPT [Concomitant]
  6. DIAMOX SRC [Concomitant]
  7. COLLYRIUM [Concomitant]
     Dates: start: 20100804
  8. BRIMONIDINE TARTRATE [Suspect]
     Indication: GLAUCOMA
     Dosage: 6 DRP, UNK
     Dates: start: 20100910, end: 20101109
  9. TRAVATAN [Concomitant]
  10. ALPHAGAN [Concomitant]
     Dates: start: 20100804
  11. BRIMONIDINE TARTRATE [Suspect]
     Indication: GLAUCOMA
     Dosage: 6 DRP/DAY
     Dates: start: 20101110, end: 20110210

REACTIONS (3)
  - VISUAL IMPAIRMENT [None]
  - OPTIC ATROPHY [None]
  - INTRAOCULAR PRESSURE INCREASED [None]
